FAERS Safety Report 7135020-X (Version None)
Quarter: 2010Q4

REPORT INFORMATION
  Report Type: 
  Country: None (occurrence: None)
  Receive Date: 20101118
  Receipt Date: 20101025
  Transmission Date: 20110411
  Serious: Yes (Hospitalization)
  Sender: FDA-Public Use
  Company Number: WAES 1011USA00925

PATIENT
  Age: 61 Year
  Sex: Male

DRUGS (6)
  1. ZOCOR [Suspect]
     Indication: HYPERCHOLESTEROLAEMIA
     Dosage: 40 MG/DAILY PO
     Route: 048
     Dates: start: 20071207, end: 20100715
  2. PLACEBO [Suspect]
     Indication: HIGH DENSITY LIPOPROTEIN DECREASED
     Dosage: PO
     Route: 048
     Dates: start: 20080228, end: 20100715
  3. TAB MK-0524A (LAROPIPRANT (+) NIACIN) [Suspect]
     Indication: HIGH DENSITY LIPOPROTEIN DECREASED
     Dosage: 20MG-1 GM PO, 40MG-2 GM PO
     Route: 048
     Dates: end: 20080228
  4. TAB MK-0524A (LAROPIPRANT (+) NIACIN) [Suspect]
     Indication: HIGH DENSITY LIPOPROTEIN DECREASED
     Dosage: 20MG-1 GM PO, 40MG-2 GM PO
     Route: 048
     Dates: start: 20080104
  5. CLARITIN [Concomitant]
  6. ASPIRIN [Concomitant]

REACTIONS (10)
  - ALANINE AMINOTRANSFERASE INCREASED [None]
  - BLOOD ALKALINE PHOSPHATASE INCREASED [None]
  - BLOOD BILIRUBIN INCREASED [None]
  - CHOLELITHIASIS [None]
  - DIARRHOEA [None]
  - GAMMA-GLUTAMYLTRANSFERASE INCREASED [None]
  - HENOCH-SCHONLEIN PURPURA [None]
  - LIVER FUNCTION TEST ABNORMAL [None]
  - THROMBIN TIME PROLONGED [None]
  - URTICARIA [None]
